FAERS Safety Report 14657469 (Version 1)
Quarter: 2018Q1

REPORT INFORMATION
  Report Type: Spontaneous
  Country: US (occurrence: US)
  Receive Date: 20180320
  Receipt Date: 20180320
  Transmission Date: 20180509
  Serious: Yes (Other)
  Sender: FDA-Public Use
  Company Number: US-BEH-2018088832

PATIENT
  Sex: Female
  Weight: 72.56 kg

DRUGS (28)
  1. AZITHROMYCIN ANHYDROUS. [Concomitant]
     Active Substance: AZITHROMYCIN ANHYDROUS
  2. TYLENOL [Concomitant]
     Active Substance: ACETAMINOPHEN
  3. SODIUM CHLORIDE. [Concomitant]
     Active Substance: SODIUM CHLORIDE
  4. TRAMADOL. [Concomitant]
     Active Substance: TRAMADOL
  5. PEPCID                             /00305201/ [Concomitant]
     Active Substance: ALUMINUM HYDROXIDE\MAGNESIUM CARBONATE
  6. POTASSIUM [Concomitant]
     Active Substance: POTASSIUM
  7. RANITIDINE. [Concomitant]
     Active Substance: RANITIDINE
  8. XOLAIR [Concomitant]
     Active Substance: OMALIZUMAB
  9. NORCO [Concomitant]
     Active Substance: ACETAMINOPHEN\HYDROCODONE BITARTRATE
  10. BENADRYL [Concomitant]
     Active Substance: DIPHENHYDRAMINE HYDROCHLORIDE
  11. VALTREX [Concomitant]
     Active Substance: VALACYCLOVIR HYDROCHLORIDE
  12. DIPHENHYDRAMINE. [Concomitant]
     Active Substance: DIPHENHYDRAMINE
  13. BERINERT [Suspect]
     Active Substance: HUMAN C1-ESTERASE INHIBITOR
     Indication: HEREDITARY ANGIOEDEMA
     Dosage: 2000 IU, UNK
     Route: 042
     Dates: start: 20170322
  14. BERINERT [Suspect]
     Active Substance: HUMAN C1-ESTERASE INHIBITOR
     Dosage: UNK
     Route: 042
  15. STERILE WATER [Concomitant]
     Active Substance: WATER
  16. HEPARIN [Concomitant]
     Active Substance: HEPARIN SODIUM
  17. KALBITOR [Concomitant]
     Active Substance: ECALLANTIDE
  18. BENTYL [Concomitant]
     Active Substance: DICYCLOMINE HYDROCHLORIDE
  19. RIZATRIPTAN. [Concomitant]
     Active Substance: RIZATRIPTAN
  20. ZYRTEC [Concomitant]
     Active Substance: CETIRIZINE HYDROCHLORIDE
  21. SINGULAIR [Concomitant]
     Active Substance: MONTELUKAST SODIUM
  22. FIRAZYR [Concomitant]
     Active Substance: ICATIBANT ACETATE
  23. AFRIN [Concomitant]
     Active Substance: OXYMETAZOLINE
  24. EPINEPHRINE. [Concomitant]
     Active Substance: EPINEPHRINE
  25. CYCLOBENZAPRINE. [Concomitant]
     Active Substance: CYCLOBENZAPRINE
  26. SUMATRIPTAN. [Concomitant]
     Active Substance: SUMATRIPTAN
  27. MAGNESIUM [Concomitant]
     Active Substance: MAGNESIUM
  28. VITAMIN D3 [Concomitant]
     Active Substance: CHOLECALCIFEROL

REACTIONS (2)
  - Hereditary angioedema [Unknown]
  - Contusion [Unknown]
